FAERS Safety Report 16869446 (Version 1)
Quarter: 2019Q3

REPORT INFORMATION
  Report Type: Spontaneous
  Country: US (occurrence: US)
  Receive Date: 20190930
  Receipt Date: 20190930
  Transmission Date: 20191005
  Serious: No
  Sender: FDA-Public Use
  Company Number: US-009507513-1909USA014668

PATIENT
  Age: 80 Year
  Sex: Male

DRUGS (1)
  1. PROVENTIL [Suspect]
     Active Substance: ALBUTEROL
     Indication: ASTHMA
     Dosage: UNK UNK, PRN (AS NEEDED)
     Dates: start: 1998

REACTIONS (4)
  - Dyspnoea [Not Recovered/Not Resolved]
  - Product quality issue [Not Recovered/Not Resolved]
  - Incorrect dose administered [Unknown]
  - Poor quality device used [Unknown]

NARRATIVE: CASE EVENT DATE: 201909
